FAERS Safety Report 9062990 (Version 1)
Quarter: 2013Q1

REPORT INFORMATION
  Report Type: Spontaneous
  Country: US (occurrence: US)
  Receive Date: 20130213
  Receipt Date: 20130213
  Transmission Date: 20140127
  Serious: Yes (Hospitalization)
  Sender: FDA-Public Use
  Company Number: US-BAYER-2013-017214

PATIENT
  Age: 27 Year
  Sex: Female
  Weight: 116.55 kg

DRUGS (6)
  1. YASMIN [Suspect]
     Indication: SKIN DISORDER
  2. LABETALOL [Concomitant]
     Dosage: 200 MG, UNK
  3. BIAXIN [Concomitant]
  4. ALDACTONE [SPIRONOLACTONE] [Concomitant]
     Dosage: 100 MG, UNK
  5. LEXAPRO [Concomitant]
  6. PERCOCET [Concomitant]

REACTIONS (2)
  - Pulmonary embolism [None]
  - Deep vein thrombosis [None]
